FAERS Safety Report 14271221 (Version 2)
Quarter: 2018Q4

REPORT INFORMATION
  Report Type: Spontaneous
  Country: CA (occurrence: CA)
  Receive Date: 20171211
  Receipt Date: 20181121
  Transmission Date: 20190204
  Serious: Yes (Hospitalization, Other)
  Sender: FDA-Public Use
  Company Number: CA-OTSUKA-2016_030053

PATIENT
  Sex: Male

DRUGS (10)
  1. ABILIFY [Suspect]
     Active Substance: ARIPIPRAZOLE
     Dosage: 4 MG, QD
     Route: 065
  2. CIPRALEX [Concomitant]
     Active Substance: ESCITALOPRAM OXALATE
     Indication: PRODUCT USED FOR UNKNOWN INDICATION
     Dosage: 5 MG, QD (1 MONTH)
     Route: 048
  3. ABILIFY [Suspect]
     Active Substance: ARIPIPRAZOLE
     Indication: ANXIETY
     Dosage: 10 MG, QD
     Route: 065
  4. CIPRALEX [Concomitant]
     Active Substance: ESCITALOPRAM OXALATE
     Dosage: 20 MG, UNK
     Route: 065
  5. QUETIAPINE. [Concomitant]
     Active Substance: QUETIAPINE
     Indication: PRODUCT USED FOR UNKNOWN INDICATION
     Dosage: UNK
     Route: 065
  6. ABILIFY [Suspect]
     Active Substance: ARIPIPRAZOLE
     Dosage: 2 MG, QD
     Route: 065
  7. ABILIFY [Suspect]
     Active Substance: ARIPIPRAZOLE
     Indication: OBSESSIVE-COMPULSIVE DISORDER
     Dosage: 1 MG, QD
     Route: 065
  8. ABILIFY [Suspect]
     Active Substance: ARIPIPRAZOLE
     Dosage: 3 MG, QD
     Route: 065
  9. ZOLOFT [Concomitant]
     Active Substance: SERTRALINE HYDROCHLORIDE
     Indication: PRODUCT USED FOR UNKNOWN INDICATION
     Dosage: 50 MG, QD (X 2 WEEKS)
     Route: 048
  10. CIPRALEX [Concomitant]
     Active Substance: ESCITALOPRAM OXALATE
     Dosage: 30 MG, UNK
     Route: 065

REACTIONS (26)
  - Thinking abnormal [Unknown]
  - Suicide attempt [Unknown]
  - Balance disorder [Unknown]
  - Flushing [Unknown]
  - Impulse-control disorder [Unknown]
  - Gambling disorder [Recovered/Resolved]
  - Hot flush [Unknown]
  - Irritability [Unknown]
  - Musculoskeletal pain [Unknown]
  - Disturbance in attention [Unknown]
  - Tachyphrenia [Unknown]
  - Apathy [Unknown]
  - Personal relationship issue [Unknown]
  - Impaired quality of life [Unknown]
  - Hypoaesthesia [Unknown]
  - Appetite disorder [Unknown]
  - Memory impairment [Unknown]
  - Aggression [Unknown]
  - Tremor [Unknown]
  - Agitation [Unknown]
  - Fear of death [Unknown]
  - Condition aggravated [Unknown]
  - Fear [Unknown]
  - Sleep disorder [Unknown]
  - Anxiety [Unknown]
  - Product use in unapproved indication [Unknown]
